FAERS Safety Report 20673005 (Version 2)
Quarter: 2022Q2

REPORT INFORMATION
  Report Type: Report from Study
  Country: KW (occurrence: KW)
  Receive Date: 20220405
  Receipt Date: 20220426
  Transmission Date: 20220721
  Serious: Yes (Other)
  Sender: FDA-Public Use
  Company Number: KW-NOVARTISPH-NVSC2021KW259012

PATIENT
  Age: 38 Year
  Sex: Female

DRUGS (10)
  1. COSENTYX [Suspect]
     Active Substance: SECUKINUMAB
     Indication: Psoriasis
     Dosage: 300 MG, QMO
     Route: 058
     Dates: start: 20190714, end: 202108
  2. COSENTYX [Suspect]
     Active Substance: SECUKINUMAB
     Dosage: 300 MG, QMO (FIRST LOADING DOSE)
     Route: 058
     Dates: start: 20220314
  3. COSENTYX [Suspect]
     Active Substance: SECUKINUMAB
     Dosage: 300 MG, QMO (SECOND LOADING DOSE)
     Route: 058
     Dates: start: 20220321
  4. COSENTYX [Suspect]
     Active Substance: SECUKINUMAB
     Dosage: 300 MG, QMO (THIRD LOADING DOSE)
     Route: 058
     Dates: start: 20220328
  5. COSENTYX [Suspect]
     Active Substance: SECUKINUMAB
     Dosage: 300 MG, QMO (FORTH LOADING DOSE)
     Route: 058
     Dates: start: 20220404
  6. COSENTYX [Suspect]
     Active Substance: SECUKINUMAB
     Dosage: 300 MG, QMO (FIFTH LOADING DOSE)
     Route: 058
     Dates: start: 20220411
  7. LEVOTHYROXINE [Concomitant]
     Active Substance: LEVOTHYROXINE
     Indication: Thyroid disorder
     Dosage: UNK
     Route: 065
  8. FOLIC ACID [Concomitant]
     Active Substance: FOLIC ACID
     Indication: Product used for unknown indication
     Dosage: UNK, QD
     Route: 065
  9. FEROGLOBIN [Concomitant]
     Indication: Product used for unknown indication
     Dosage: UNK, QD
     Route: 065
  10. VITAMIN B12 [Concomitant]
     Active Substance: CYANOCOBALAMIN
     Indication: Product used for unknown indication
     Dosage: UNK (8 INJECTION TO BE TAKEN DAY AFTER DAY, SHE FINISHED THEM THEN ONCE WEEKLY FOR MONTH)
     Route: 065

REACTIONS (2)
  - Haemoglobin decreased [Recovered/Resolved]
  - Psoriasis [Not Recovered/Not Resolved]

NARRATIVE: CASE EVENT DATE: 20211101
